FAERS Safety Report 7726805-7 (Version None)
Quarter: 2011Q3

REPORT INFORMATION
  Report Type: 
  Country: None (occurrence: None)
  Receive Date: 20110902
  Receipt Date: 20110825
  Transmission Date: 20111222
  Serious: Yes (Death, Hospitalization)
  Sender: FDA-Public Use
  Company Number: DE-GLAXOSMITHKLINE-B0732362B

PATIENT
  Sex: Female
  Weight: 75 kg

DRUGS (8)
  1. BLINDED TRIAL MEDICATION [Suspect]
     Indication: OVARIAN CANCER RECURRENT
     Route: 048
     Dates: start: 20110702
  2. PIPERACILLIN AND TAZOBACTAM [Concomitant]
     Indication: INFECTION
     Dosage: 4.5MG PER DAY
     Route: 042
     Dates: start: 20110803, end: 20110803
  3. ZIENAM [Concomitant]
     Indication: INFECTION
     Dosage: 100ML PER DAY
     Route: 042
     Dates: start: 20110803, end: 20110805
  4. FENTANYL [Concomitant]
     Indication: PAIN
     Dosage: 25MG PER DAY
     Route: 042
     Dates: start: 20110801, end: 20110802
  5. UNKNOWN DRUG [Concomitant]
     Dosage: 250MCG PER DAY
     Route: 042
     Dates: start: 20110803, end: 20110803
  6. TOPOTECAN [Suspect]
     Indication: OVARIAN CANCER RECURRENT
     Route: 042
     Dates: start: 20110627
  7. MORPHINE [Concomitant]
     Indication: PAIN
     Dosage: 100MG PER DAY
     Route: 042
     Dates: start: 20110803, end: 20110806
  8. PROPOFOL [Concomitant]
     Indication: SEDATION
     Route: 042
     Dates: start: 20110803, end: 20110803

REACTIONS (4)
  - VOMITING [None]
  - SEPTIC SHOCK [None]
  - NEUTROPENIA [None]
  - SUBILEUS [None]
